FAERS Safety Report 7508980-2 (Version None)
Quarter: 2011Q2

REPORT INFORMATION
  Report Type: 
  Country: None (occurrence: None)
  Receive Date: 20110527
  Receipt Date: 20110525
  Transmission Date: 20111010
  Serious: Yes (Death)
  Sender: FDA-Public Use
  Company Number: FR-SANOFI-AVENTIS-2011SA032522

PATIENT
  Age: 75 Year
  Sex: Male

DRUGS (13)
  1. BENERVA [Concomitant]
     Dates: start: 20101216
  2. NICOBION [Concomitant]
     Dates: start: 20101216
  3. BISOPROLOL FUMARATE [Suspect]
     Route: 048
     Dates: start: 20110126, end: 20110203
  4. RABEPRAZOLE SODIUM [Concomitant]
     Route: 048
  5. BECILAN [Concomitant]
     Dates: start: 20101216
  6. OROCAL D(3) [Concomitant]
  7. PREDNISOLONE [Suspect]
     Dosage: DOSE:1 UNIT(S)
     Route: 048
     Dates: start: 20101216
  8. PERINDOPRIL ERBUMINE [Concomitant]
     Route: 048
  9. PREVISCAN [Concomitant]
     Route: 048
     Dates: end: 20101216
  10. PLAVIX [Suspect]
     Indication: THROMBOSIS PROPHYLAXIS
     Route: 048
     Dates: start: 20101216, end: 20110203
  11. DIFFU K [Concomitant]
  12. SECTRAL [Suspect]
     Route: 048
     Dates: start: 20101216, end: 20110126
  13. FLECAINIDE ACETATE [Concomitant]
     Dates: end: 20101216

REACTIONS (2)
  - HEPATIC FAILURE [None]
  - JAUNDICE [None]
